FAERS Safety Report 9830486 (Version 1)
Quarter: 2014Q1

REPORT INFORMATION
  Report Type: Spontaneous
  Country: JP (occurrence: JP)
  Receive Date: 20140120
  Receipt Date: 20140120
  Transmission Date: 20141002
  Serious: Yes (Other)
  Sender: FDA-Public Use
  Company Number: JP-GLAXOSMITHKLINE-B0961250A

PATIENT
  Age: 67 Year
  Sex: Male

DRUGS (1)
  1. REQUIP [Suspect]
     Indication: PARKINSON^S DISEASE
     Dosage: 1.5MG THREE TIMES PER DAY
     Route: 048

REACTIONS (3)
  - Parkinson^s disease [Unknown]
  - Scoliosis [Not Recovered/Not Resolved]
  - Dystonia [Unknown]
